FAERS Safety Report 7639559-X (Version None)
Quarter: 2011Q3

REPORT INFORMATION
  Report Type: 
  Country: None (occurrence: None)
  Receive Date: 20110722
  Receipt Date: 20110719
  Transmission Date: 20111222
  Serious: Yes (Death)
  Sender: FDA-Public Use
  Company Number: 201110803

PATIENT

DRUGS (1)
  1. LIORESAL [Suspect]
     Indication: MUSCLE SPASTICITY
     Dosage: 49.97 MCG, DAILY, INTRATHECAL
     Route: 037

REACTIONS (2)
  - IATROGENIC INJURY [None]
  - SUDDEN CARDIAC DEATH [None]
